FAERS Safety Report 21410756 (Version 4)
Quarter: 2023Q2

REPORT INFORMATION
  Report Type: Spontaneous
  Country: US (occurrence: None)
  Receive Date: 20221005
  Receipt Date: 20230428
  Transmission Date: 20230722
  Serious: Yes (Other)
  Sender: FDA-Public Use
  Company Number: US-ROCHE-3193081

PATIENT
  Sex: Female

DRUGS (5)
  1. XOLAIR [Suspect]
     Active Substance: OMALIZUMAB
     Indication: Idiopathic urticaria
     Route: 058
     Dates: start: 20220228
  2. XOLAIR [Suspect]
     Active Substance: OMALIZUMAB
  3. XOLAIR [Suspect]
     Active Substance: OMALIZUMAB
     Route: 058
     Dates: start: 202206
  4. XOLAIR [Suspect]
     Active Substance: OMALIZUMAB
  5. EPIPEN [Concomitant]
     Active Substance: EPINEPHRINE

REACTIONS (11)
  - Mast cell activation syndrome [Unknown]
  - Headache [Unknown]
  - Condition aggravated [Unknown]
  - Flushing [Unknown]
  - Chest pain [Unknown]
  - Fatigue [Unknown]
  - Myalgia [Unknown]
  - Urticaria [Unknown]
  - Swelling [Unknown]
  - Blood pressure fluctuation [Unknown]
  - Heavy menstrual bleeding [Unknown]
